FAERS Safety Report 4701170-8 (Version None)
Quarter: 2005Q2

REPORT INFORMATION
  Report Type: 
  Country: None (occurrence: None)
  Receive Date: 20050628
  Receipt Date: 20050427
  Transmission Date: 20051028
  Serious: Yes (Hospitalization, Other)
  Sender: FDA-Public Use
  Company Number: DE-GLAXOSMITHKLINE-D0046478A

PATIENT
  Age: 46 Year
  Sex: Female

DRUGS (1)
  1. MALARONE [Suspect]
     Indication: MALARIA PROPHYLAXIS
     Dosage: 1TAB PER DAY
     Route: 048
     Dates: start: 20040908, end: 20040924

REACTIONS (13)
  - ATHEROSCLEROSIS [None]
  - CAROTID ARTERY ATHEROMA [None]
  - DIZZINESS [None]
  - FORMICATION [None]
  - HEADACHE [None]
  - MACULAR OEDEMA [None]
  - MALAISE [None]
  - NECK PAIN [None]
  - PARAESTHESIA [None]
  - RETINAL ARTERY OCCLUSION [None]
  - RETINAL VEIN OCCLUSION [None]
  - SENSATION OF HEAVINESS [None]
  - VISUAL DISTURBANCE [None]
